FAERS Safety Report 8551064-5 (Version None)
Quarter: 2012Q3

REPORT INFORMATION
  Report Type: 
  Country: None (occurrence: None)
  Receive Date: 20120730
  Receipt Date: 20120724
  Transmission Date: 20120928
  Serious: Yes (Hospitalization)
  Sender: FDA-Public Use
  Company Number: AU-JNJFOC-20120517290

PATIENT
  Sex: Male
  Weight: 66.9 kg

DRUGS (8)
  1. PREDNISOLONE [Suspect]
     Indication: PROSTATE CANCER METASTATIC
     Route: 048
     Dates: start: 20110914, end: 20120509
  2. ABIRATERONE ACETATE [Suspect]
     Route: 048
  3. ABIRATERONE ACETATE [Suspect]
     Indication: PROSTATE CANCER METASTATIC
     Route: 048
     Dates: start: 20110914, end: 20120509
  4. CLARATYNE [Concomitant]
     Indication: SEASONAL ALLERGY
     Route: 065
     Dates: start: 20090101
  5. ARISTOCORT A [Concomitant]
     Indication: CELLULITIS
     Route: 065
     Dates: start: 20110817, end: 20120520
  6. ZOMETA [Concomitant]
     Indication: METASTASES TO BONE
     Route: 065
     Dates: start: 20110427, end: 20120508
  7. ACETAMINOPHEN [Concomitant]
     Indication: OSTEOARTHRITIS
     Route: 065
     Dates: start: 20100101
  8. PANTOPRAZOLE [Concomitant]
     Indication: HIATUS HERNIA
     Route: 065
     Dates: start: 20000101

REACTIONS (1)
  - CELLULITIS [None]
